FAERS Safety Report 8605385-8 (Version None)
Quarter: 2012Q3

REPORT INFORMATION
  Report Type: 
  Country: None (occurrence: None)
  Receive Date: 20120820
  Receipt Date: 20120813
  Transmission Date: 20120928
  Serious: Yes (Other)
  Sender: FDA-Public Use
  Company Number: RS-PFIZER INC-2012178577

PATIENT
  Age: 69 Year
  Sex: Female
  Weight: 86 kg

DRUGS (6)
  1. CLONAZEPAM [Concomitant]
     Indication: SEDATION
     Dosage: UNK MG, 2X/DAY, 1/4IN THE MORNING AND 1/2 IN THE EVENING
     Route: 048
     Dates: start: 20120101
  2. NIPAM [Concomitant]
     Indication: INSOMNIA
     Dosage: UNK, 1X/DAY, IN THE EVENING
     Route: 048
     Dates: start: 20120101
  3. OMEPROL [Concomitant]
     Dosage: UNK
  4. LYRICA [Suspect]
     Indication: NEURALGIA
     Dosage: 75 MG, 2X/DAY
     Route: 048
     Dates: start: 20120605, end: 20120607
  5. TRAZODONE HCL [Concomitant]
     Indication: DEPRESSION
     Dosage: UNK
     Route: 048
     Dates: start: 20120101
  6. OMEPROL [Concomitant]
     Indication: GASTRITIS
     Dosage: UNK
     Route: 048
     Dates: start: 20120627

REACTIONS (3)
  - ABNORMAL BEHAVIOUR [None]
  - DISORIENTATION [None]
  - AGGRESSION [None]
